FAERS Safety Report 24278793 (Version 1)
Quarter: 2024Q3

REPORT INFORMATION
  Report Type: Spontaneous
  Country: US (occurrence: None)
  Receive Date: 20240831
  Receipt Date: 20240831
  Transmission Date: 20241016
  Serious: Yes (Other)
  Sender: Public
  Company Number: None

PATIENT
  Age: 29 Year
  Sex: Female
  Weight: 58.95 kg

DRUGS (4)
  1. VAGISIL ANTI ITCH MAXIMUM STRENGTH [Suspect]
     Active Substance: BENZOCAINE\RESORCINOL
     Indication: Vulvovaginal pruritus
     Dosage: 1  FINGERTIP AMOUNT  UP TO 3-4X DAILY TOPICAL
     Route: 061
     Dates: start: 20240825, end: 20240826
  2. ESCITALOPRAM [Concomitant]
     Active Substance: ESCITALOPRAM OXALATE
  3. Mirena IUD [Concomitant]
  4. ALLEGRA [Concomitant]
     Active Substance: FEXOFENADINE HYDROCHLORIDE

REACTIONS (6)
  - Vulvovaginal rash [None]
  - Vulvovaginal swelling [None]
  - Blister rupture [None]
  - Genital blister [None]
  - Gait inability [None]
  - Dysuria [None]

NARRATIVE: CASE EVENT DATE: 20240825
